FAERS Safety Report 17056065 (Version 2)
Quarter: 2019Q4

REPORT INFORMATION
  Report Type: Spontaneous
  Country: US (occurrence: US)
  Receive Date: 20191121
  Receipt Date: 20191225
  Transmission Date: 20200122
  Serious: Yes (Death, Hospitalization, Other)
  Sender: FDA-Public Use
  Company Number: US-AUROBINDO-AUR-APL-2019-072848

PATIENT
  Age: 65 Year
  Sex: Male

DRUGS (1)
  1. KHAPZORY [Suspect]
     Active Substance: LEVOLEUCOVORIN DISODIUM
     Indication: PANCREATIC CARCINOMA
     Dosage: 450 MILLIGRAM, EVERY 2 WEEKS
     Route: 065

REACTIONS (1)
  - Pancreatic carcinoma [Fatal]

NARRATIVE: CASE EVENT DATE: 20190910
